FAERS Safety Report 11534488 (Version 1)
Quarter: 2015Q3

REPORT INFORMATION
  Report Type: Spontaneous
  Country: TR (occurrence: TR)
  Receive Date: 20150922
  Receipt Date: 20150922
  Transmission Date: 20151125
  Serious: Yes (Death)
  Sender: FDA-Public Use
  Company Number: PHHY2015TR110123

PATIENT
  Age: 35 Year
  Sex: Male

DRUGS (2)
  1. SANDOSTATIN LAR DEPOT [Suspect]
     Active Substance: OCTREOTIDE ACETATE
     Dosage: 20 MG, UNK
     Route: 042
  2. SANDOSTATIN LAR DEPOT [Suspect]
     Active Substance: OCTREOTIDE ACETATE
     Indication: ECTOPIC ACTH SYNDROME
     Dosage: 20 MG, UNK
     Route: 030

REACTIONS (3)
  - Sepsis [Fatal]
  - Off label use [Unknown]
  - Incorrect route of drug administration [Unknown]
